FAERS Safety Report 7037931-2 (Version None)
Quarter: 2010Q4

REPORT INFORMATION
  Report Type: 
  Country: None (occurrence: None)
  Receive Date: 20101011
  Receipt Date: 20101004
  Transmission Date: 20110411
  Serious: Yes (Death)
  Sender: FDA-Public Use
  Company Number: JP-WYE-H17060110

PATIENT
  Sex: Female
  Weight: 70 kg

DRUGS (8)
  1. ZOSYN [Suspect]
     Indication: URINARY TRACT INFECTION
     Route: 041
     Dates: start: 20100802, end: 20100804
  2. ZOSYN [Suspect]
     Indication: ENTERITIS INFECTIOUS
  3. ZOSYN [Suspect]
     Indication: PNEUMONIA
  4. SERENACE [Concomitant]
     Indication: RESTLESSNESS
     Route: 041
     Dates: start: 20100804, end: 20100805
  5. VITAMEDIN [Concomitant]
     Indication: FLUID REPLACEMENT
     Dosage: 1V/DAY
     Route: 041
     Dates: start: 20100802
  6. VEEN D [Concomitant]
     Route: 041
     Dates: start: 20100802
  7. CIPROFLOXACIN HCL [Suspect]
     Indication: PRODUCT USED FOR UNKNOWN INDICATION
     Dosage: UNKNOWN
     Route: 048
  8. SOLITA-T3 [Concomitant]
     Indication: FLUID REPLACEMENT
     Route: 041
     Dates: start: 20100802

REACTIONS (1)
  - TOXIC EPIDERMAL NECROLYSIS [None]
